FAERS Safety Report 15207782 (Version 1)
Quarter: 2018Q3

REPORT INFORMATION
  Report Type: Spontaneous
  Country: US (occurrence: US)
  Receive Date: 20180727
  Receipt Date: 20180727
  Transmission Date: 20181010
  Serious: No
  Sender: FDA-Public Use
  Company Number: US-ALLERGAN-1758057US

PATIENT
  Age: 63 Year
  Sex: Male

DRUGS (1)
  1. ANDRODERM [Suspect]
     Active Substance: TESTOSTERONE
     Indication: ANDROGEN REPLACEMENT THERAPY
     Dosage: ONE PATCH, QD
     Route: 062
     Dates: start: 201709

REACTIONS (2)
  - Urticaria [Recovered/Resolved]
  - Pruritus [Unknown]
